FAERS Safety Report 7407145-2 (Version None)
Quarter: 2011Q2

REPORT INFORMATION
  Report Type: 
  Country: None (occurrence: None)
  Receive Date: 20110411
  Receipt Date: 20110328
  Transmission Date: 20111010
  Serious: No
  Sender: FDA-Public Use
  Company Number: US-B.I. PHARMACEUTICALS,INC./RIDGEFIELD-2011-BP-09400BP

PATIENT
  Sex: Female

DRUGS (6)
  1. PRADAXA [Suspect]
     Indication: DRUG THERAPY CHANGED
     Dosage: 75 MG
     Route: 048
     Dates: start: 20110301, end: 20110301
  2. INDERAL [Concomitant]
     Indication: ATRIAL FIBRILLATION
     Dosage: 30 MG
  3. PRADAXA [Suspect]
     Dosage: 150 MG
     Route: 048
     Dates: start: 20110326
  4. FAMOTIDINE [Concomitant]
  5. MULTAQ [Concomitant]
     Indication: ATRIAL FIBRILLATION
     Dosage: 800 MG
  6. PREMPRO [Concomitant]

REACTIONS (1)
  - HEADACHE [None]
